FAERS Safety Report 9170491 (Version 1)
Quarter: 2013Q1

REPORT INFORMATION
  Report Type: Spontaneous
  Country: JP (occurrence: None)
  Receive Date: 20130311
  Receipt Date: 20130311
  Transmission Date: 20140127
  Serious: Yes (Other)
  Sender: FDA-Public Use
  Company Number: 2013-03696

PATIENT
  Sex: Male

DRUGS (4)
  1. LAMOTRIGINE [Suspect]
     Indication: LENNOX-GASTAUT SYNDROME
  2. VALPROIC ACID (VALPROIC ACID) [Concomitant]
  3. ZONISAMIDE (ZONISAMIDE) [Concomitant]
  4. CLOBAZAM (CLOBAZAM) [Suspect]

REACTIONS (2)
  - Circadian rhythm sleep disorder [None]
  - Somnolence [None]
